FAERS Safety Report 8517575 (Version 3)
Quarter: 2013Q4

REPORT INFORMATION
  Report Type: Spontaneous
  Country: US (occurrence: US)
  Receive Date: 20120417
  Receipt Date: 20131113
  Transmission Date: 20140711
  Serious: Yes (Hospitalization, Other)
  Sender: FDA-Public Use
  Company Number: US-ASTRAZENECA-2012SE07684

PATIENT
  Age: 86 Year
  Sex: Female
  Weight: 70.3 kg

DRUGS (12)
  1. NEXIUM [Suspect]
     Indication: GASTROOESOPHAGEAL REFLUX DISEASE
     Route: 048
  2. NEXIUM [Suspect]
     Indication: GASTROOESOPHAGEAL REFLUX DISEASE
     Route: 048
     Dates: end: 201304
  3. VALIUM [Concomitant]
     Indication: BONE PAIN
     Dosage: 5 MG AT NIGHT, AS NEEDED
     Route: 048
  4. CAPTOPRIL [Concomitant]
     Indication: HYPERTENSION
     Route: 048
     Dates: start: 1987
  5. SYNTHROID [Concomitant]
     Indication: THYROID DISORDER
     Route: 048
     Dates: start: 1961
  6. TOVIAZ [Concomitant]
     Indication: BLADDER DISORDER
     Route: 048
     Dates: start: 2008
  7. MICRO K [Concomitant]
     Indication: BLOOD POTASSIUM ABNORMAL
     Route: 048
  8. TRAMCINOLONE ACETONIDE TOPICAL MIXED WITH NYSTATIN [Concomitant]
     Indication: RASH
     Dosage: PRN
     Route: 061
  9. NORCO [Concomitant]
     Indication: PAIN
     Dosage: 5/325 MG PRN, EVERY SIX HOURS
     Route: 048
  10. MAGNESIUM [Concomitant]
     Indication: MUSCLE SPASMS
     Route: 048
  11. LIPITOR [Concomitant]
     Indication: LIPIDS INCREASED
     Route: 048
     Dates: start: 1988
  12. LASIX [Concomitant]
     Indication: HYPERTENSION
     Route: 048

REACTIONS (26)
  - Cholelithiasis [Unknown]
  - Localised infection [Unknown]
  - Haemorrhage [Unknown]
  - Fall [Unknown]
  - Body temperature increased [Unknown]
  - Breast cancer [Unknown]
  - Back pain [Unknown]
  - Abdominal pain upper [Unknown]
  - Hepatic enzyme increased [Unknown]
  - Osteoporosis [Unknown]
  - Gastrooesophageal reflux disease [Unknown]
  - Intentional drug misuse [Unknown]
  - Feeling abnormal [Unknown]
  - Oesophageal pain [Unknown]
  - Bronchitis [Unknown]
  - Laryngitis [Unknown]
  - Tooth loss [Unknown]
  - Bone fragmentation [Unknown]
  - Weight decreased [Unknown]
  - Scar [Unknown]
  - Ulcer [Recovered/Resolved]
  - Hiatus hernia [Unknown]
  - Oesophageal dilatation [Unknown]
  - Amnesia [Unknown]
  - Malaise [Unknown]
  - Drug dose omission [Unknown]
